FAERS Safety Report 6407141-8 (Version None)
Quarter: 2009Q4

REPORT INFORMATION
  Report Type: 
  Country: None (occurrence: None)
  Receive Date: 20091014
  Receipt Date: 20091001
  Transmission Date: 20100525
  Serious: Yes (Other)
  Sender: FDA-Public Use
  Company Number: 2009-4094

PATIENT
  Sex: Male

DRUGS (1)
  1. DYSPORT [Suspect]
     Indication: MUSCLE SPASTICITY
     Dosage: NOT REPORTED (NOT REPORTED,SINGLE CYCLE)

REACTIONS (1)
  - DEEP VEIN THROMBOSIS [None]
